FAERS Safety Report 23966800 (Version 1)
Quarter: 2024Q2

REPORT INFORMATION
  Report Type: Spontaneous
  Country: RU (occurrence: None)
  Receive Date: 20240612
  Receipt Date: 20240612
  Transmission Date: 20240716
  Serious: Yes (Other)
  Sender: FDA-Public Use
  Company Number: RU-ROCHE-3580142

PATIENT
  Sex: Male

DRUGS (1)
  1. ENTRECTINIB [Suspect]
     Active Substance: ENTRECTINIB
     Indication: Product used for unknown indication
     Route: 065
     Dates: start: 202211

REACTIONS (7)
  - Cardiotoxicity [Unknown]
  - Syncope [Unknown]
  - Cardiac failure congestive [Unknown]
  - Ventricular dyskinesia [Unknown]
  - Hypokinesia [Unknown]
  - Hypotension [Unknown]
  - Ejection fraction decreased [Unknown]

NARRATIVE: CASE EVENT DATE: 20231001
